FAERS Safety Report 6843714-6 (Version None)
Quarter: 2010Q3

REPORT INFORMATION
  Report Type: 
  Country: None (occurrence: None)
  Receive Date: 20100714
  Receipt Date: 20100714
  Transmission Date: 20110219
  Serious: Yes (Other)
  Sender: FDA-Public Use
  Company Number: None

PATIENT
  Sex: Female
  Weight: 118.3888 kg

DRUGS (2)
  1. WELLBUTRIN [Suspect]
     Indication: ANXIETY
     Dates: start: 20051101, end: 20061101
  2. WELLBUTRIN [Suspect]
     Indication: DEPRESSION
     Dates: start: 20051101, end: 20061101

REACTIONS (3)
  - DIZZINESS [None]
  - NAUSEA [None]
  - PRODUCT SUBSTITUTION ISSUE [None]
